FAERS Safety Report 4390154-8 (Version None)
Quarter: 2004Q2

REPORT INFORMATION
  Report Type: 
  Country: None (occurrence: None)
  Receive Date: 20040630
  Receipt Date: 20040617
  Transmission Date: 20050107
  Serious: Yes (Other)
  Sender: FDA-Public Use
  Company Number: DE-JNJFOC-20040503084

PATIENT
  Age: 50 Year
  Sex: Female

DRUGS (1)
  1. RISPERDAL [Suspect]
     Indication: PSYCHOTIC DISORDER
     Dosage: 2 MG, IN 1 DAY; ORAL
     Route: 048
     Dates: start: 20000629, end: 20040601

REACTIONS (2)
  - BREAST CANCER RECURRENT [None]
  - HYPERPROLACTINAEMIA [None]
